FAERS Safety Report 4982470-3 (Version None)
Quarter: 2006Q2

REPORT INFORMATION
  Report Type: 
  Country: None (occurrence: None)
  Receive Date: 20060421
  Receipt Date: 20060413
  Transmission Date: 20061013
  Serious: Yes (Hospitalization)
  Sender: FDA-Public Use
  Company Number: 2006050429

PATIENT
  Age: 46 Year
  Sex: Female
  Weight: 56.6996 kg

DRUGS (3)
  1. BENADRYL [Suspect]
     Indication: SEASONAL ALLERGY
     Dosage: 1-2 TABLETS EVERY 4 HOURS, ORAL
     Route: 048
  2. ETHANOL (ETHANOL) [Suspect]
  3. CEPHALEXIN MONOHYDRATE [Concomitant]

REACTIONS (5)
  - ALCOHOL USE [None]
  - BIPOLAR DISORDER [None]
  - CONVULSION [None]
  - DELUSION [None]
  - MANIA [None]
